FAERS Safety Report 23345805 (Version 2)
Quarter: 2024Q1

REPORT INFORMATION
  Report Type: Report from Study
  Country: NL (occurrence: NL)
  Receive Date: 20231228
  Receipt Date: 20240325
  Transmission Date: 20240409
  Serious: Yes (Hospitalization, Other)
  Sender: FDA-Public Use
  Company Number: NL-ABBVIE-5561045

PATIENT
  Age: 71 Year
  Sex: Male

DRUGS (6)
  1. CARBIDOPA\LEVODOPA [Suspect]
     Active Substance: CARBIDOPA\LEVODOPA
     Indication: Parkinson^s disease
     Dosage: REMAINS AT 16 HOURS, LAST ADMIN DATE: 2023
     Route: 050
     Dates: start: 20230805
  2. CARBIDOPA\LEVODOPA [Suspect]
     Active Substance: CARBIDOPA\LEVODOPA
     Dosage: MD: 12.0 ML, CD: 3.8ML/H, ED: 2.0ML, REMAINS AT 16 HOURS, LAST ADMIN DATE: 2023
     Route: 050
     Dates: start: 20231220, end: 20240320
  3. CARBIDOPA\LEVODOPA [Suspect]
     Active Substance: CARBIDOPA\LEVODOPA
     Dosage: REMAINS AT 16 HOURS
     Route: 050
  4. CARBIDOPA\LEVODOPA [Suspect]
     Active Substance: CARBIDOPA\LEVODOPA
     Dosage: MD: 12.0 ML, CD: 3.8ML/H, ED: 2.0ML, LAST ADMIN DATE MAR 2024
     Route: 050
     Dates: start: 20240320
  5. POLYETHYLENE GLYCOLS [Concomitant]
     Active Substance: POLYETHYLENE GLYCOLS
     Indication: Bowel movement irregularity
     Dosage: 0.5 SACHET
  6. POLYETHYLENE GLYCOLS [Concomitant]
     Active Substance: POLYETHYLENE GLYCOLS
     Indication: Bowel movement irregularity
     Dosage: 0.5 SACHET

REACTIONS (17)
  - Intestinal obstruction [Unknown]
  - Nocturia [Not Recovered/Not Resolved]
  - Abdominal pain [Recovered/Resolved]
  - Muscle rigidity [Not Recovered/Not Resolved]
  - Disturbance in attention [Not Recovered/Not Resolved]
  - Anosmia [Not Recovered/Not Resolved]
  - Surgery [Recovered/Resolved]
  - Fatigue [Not Recovered/Not Resolved]
  - Mobility decreased [Not Recovered/Not Resolved]
  - Abnormal dreams [Not Recovered/Not Resolved]
  - Vomiting [Recovered/Resolved]
  - Dyskinesia [Not Recovered/Not Resolved]
  - Device issue [Not Recovered/Not Resolved]
  - Gait disturbance [Not Recovered/Not Resolved]
  - Inguinal hernia [Unknown]
  - On and off phenomenon [Unknown]
  - Movement disorder [Not Recovered/Not Resolved]

NARRATIVE: CASE EVENT DATE: 20230701
